FAERS Safety Report 8601009 (Version 2)
Quarter: 2012Q4

REPORT INFORMATION
  Report Type: 
  Country: DE (occurrence: DE)
  Receive Date: 20120606
  Receipt Date: 20121022
  Transmission Date: 20130627
  Serious: Yes (Hospitalization)
  Sender: FDA-Public Use
  Company Number: DE-UCBSA-058334

PATIENT
  Age: 24 Month
  Sex: Male

DRUGS (5)
  1. KEPPRA [Suspect]
     Dosage: 100MG/ML
     Dates: start: 201111
  2. OSPOLOT [Concomitant]
  3. ORFIRIL [Concomitant]
  4. FRISIUM [Concomitant]
  5. LEVETIRACETAM DESITIN [Concomitant]

REACTIONS (1)
  - Convulsion [Unknown]
